FAERS Safety Report 5740218-9 (Version None)
Quarter: 2008Q2

REPORT INFORMATION
  Report Type: 
  Country: None (occurrence: None)
  Receive Date: 20080516
  Receipt Date: 20080508
  Transmission Date: 20081010
  Serious: Yes (Hospitalization)
  Sender: FDA-Public Use
  Company Number: AU-AVENTIS-200812132EU

PATIENT
  Age: 43 Year
  Sex: Female

DRUGS (2)
  1. ENOXAPARIN SODIUM [Suspect]
     Route: 058
     Dates: start: 20080225, end: 20080420
  2. WARFARIN SODIUM [Concomitant]
     Dates: start: 20080225

REACTIONS (5)
  - CHEST PAIN [None]
  - DYSPNOEA [None]
  - HEADACHE [None]
  - HYPOTENSION [None]
  - PAIN IN EXTREMITY [None]
